FAERS Safety Report 9242496 (Version 2)
Quarter: 2013Q2

REPORT INFORMATION
  Report Type: Spontaneous
  Country: FR (occurrence: FR)
  Receive Date: 20130419
  Receipt Date: 20130425
  Transmission Date: 20140414
  Serious: Yes (Other)
  Sender: FDA-Public Use
  Company Number: FR-JNJFOC-20130408557

PATIENT
  Sex: 0

DRUGS (9)
  1. DOXORUBICIN [Suspect]
     Indication: MANTLE CELL LYMPHOMA
     Dosage: DAY 1
     Route: 042
  2. DOXORUBICIN [Suspect]
     Indication: MANTLE CELL LYMPHOMA
     Dosage: DAY 1
     Route: 065
  3. VINCRISTINE [Suspect]
     Indication: MANTLE CELL LYMPHOMA
     Dosage: DAY 1
     Route: 065
  4. PREDNISONE [Suspect]
     Indication: MANTLE CELL LYMPHOMA
     Dosage: DAYS 1-5
     Route: 065
  5. RITUXIMAB [Suspect]
     Indication: MANTLE CELL LYMPHOMA
     Dosage: DAYS 1-5
     Route: 065
  6. DEXAMETHASONE [Suspect]
     Indication: MANTLE CELL LYMPHOMA
     Dosage: DAYS 1-4
     Route: 065
  7. CYTARABINE [Suspect]
     Indication: MANTLE CELL LYMPHOMA
     Dosage: DAY 2
     Route: 065
  8. CISPLATIN [Suspect]
     Indication: MANTLE CELL LYMPHOMA
     Dosage: DAY 1 CONTINUOUS INFUSION
     Route: 065
  9. CYCLOPHOSPHAMIDE [Suspect]
     Indication: MANTLE CELL LYMPHOMA
     Dosage: DAY 1
     Route: 065

REACTIONS (1)
  - Diffuse large B-cell lymphoma [Unknown]
